FAERS Safety Report 5476052-7 (Version None)
Quarter: 2007Q4

REPORT INFORMATION
  Report Type: 
  Country: None (occurrence: None)
  Receive Date: 20071003
  Receipt Date: 20071001
  Transmission Date: 20080405
  Serious: Yes (Death, Life-Threatening, Hospitalization, Other)
  Sender: FDA-Public Use
  Company Number: ES-SANOFI-SYNTHELABO-F01200701223

PATIENT
  Sex: Female
  Weight: 55 kg

DRUGS (9)
  1. LIORESAL [Concomitant]
     Indication: HICCUPS
     Dosage: 3 COMP. (SIC)
     Route: 048
     Dates: start: 20070907, end: 20070918
  2. REXER [Concomitant]
     Indication: DEPRESSION
     Route: 048
     Dates: start: 20070706, end: 20070918
  3. ORAL FERRUM [Concomitant]
     Indication: ANAEMIA
     Dosage: 3 COMP (SIC)
     Route: 048
     Dates: start: 20061020, end: 20070918
  4. BOREA [Concomitant]
     Indication: ANOREXIA
     Dosage: 5 COMP (SIC)
     Route: 048
     Dates: start: 20070629, end: 20070918
  5. RABEPRAZOL [Concomitant]
     Indication: GASTRITIS
     Route: 048
     Dates: start: 20070810, end: 20070915
  6. IBUPROFEN [Concomitant]
     Indication: PAIN
     Route: 048
     Dates: start: 20070727, end: 20070915
  7. DOCETAXEL [Suspect]
     Route: 042
     Dates: start: 20070910, end: 20070910
  8. OXALIPLATIN [Suspect]
     Indication: GASTRIC CANCER
     Route: 042
     Dates: start: 20070910, end: 20070910
  9. FLUOROURACIL [Suspect]
     Route: 042
     Dates: start: 20070910, end: 20070912

REACTIONS (4)
  - BACTERIAL CULTURE POSITIVE [None]
  - EMPYEMA [None]
  - NEUTROPENIA [None]
  - PLEURAL EFFUSION [None]
